FAERS Safety Report 8010583-0 (Version None)
Quarter: 2011Q4

REPORT INFORMATION
  Report Type: 
  Country: None (occurrence: None)
  Receive Date: 20111228
  Receipt Date: 20111221
  Transmission Date: 20120403
  Serious: Yes (Hospitalization)
  Sender: FDA-Public Use
  Company Number: PHEH2011US012402

PATIENT
  Age: 14 Year
  Sex: Male
  Weight: 45.351 kg

DRUGS (2)
  1. PULMOZYME [Concomitant]
  2. TOBRAMYCIN [Suspect]
     Dosage: 300 MG, BID FOR 28 DAYS EVERY OTHER MONTH
     Dates: start: 20110613

REACTIONS (2)
  - PNEUMONIA [None]
  - WEIGHT GAIN POOR [None]
